FAERS Safety Report 7453877-X (Version None)
Quarter: 2011Q2

REPORT INFORMATION
  Report Type: 
  Country: None (occurrence: None)
  Receive Date: 20110502
  Receipt Date: 20110419
  Transmission Date: 20111010
  Serious: Yes (Death)
  Sender: FDA-Public Use
  Company Number: FR-GENENTECH-317442

PATIENT
  Sex: Female

DRUGS (5)
  1. SOLU-MEDROL [Suspect]
     Indication: DIFFUSE LARGE B-CELL LYMPHOMA
     Dosage: 100 MG, UNK
     Route: 017
     Dates: start: 20100311
  2. VINCRISTINE [Suspect]
     Indication: DIFFUSE LARGE B-CELL LYMPHOMA
     Dosage: 8 MG, UNK
     Route: 017
     Dates: start: 20100312
  3. NEUPOGEN [Suspect]
     Indication: PRODUCT USED FOR UNKNOWN INDICATION
     Dosage: UNK
     Route: 017
     Dates: start: 20100318
  4. CYCLOPHOSPHAMIDE [Suspect]
     Indication: DIFFUSE LARGE B-CELL LYMPHOMA
     Dosage: 860 MG, UNK
     Route: 017
     Dates: start: 20100312
  5. RITUXIMAB [Suspect]
     Indication: DIFFUSE LARGE B-CELL LYMPHOMA
     Dosage: 570 MG, UNK
     Route: 017
     Dates: start: 20100311

REACTIONS (1)
  - DEATH [None]
